FAERS Safety Report 9412096 (Version 1)
Quarter: 2013Q2

REPORT INFORMATION
  Report Type: Spontaneous
  Country: DE (occurrence: None)
  Receive Date: 20130412
  Receipt Date: 20130412
  Transmission Date: 20140414
  Serious: Yes (Disabling)
  Sender: FDA-Public Use
  Company Number: 1301-125

PATIENT
  Age: 82 Year
  Sex: Male

DRUGS (2)
  1. EYLEA (AFLIBERCEPT)(INJECTION)(AFLIBERCEPT) [Suspect]
     Indication: AGE-RELATED MACULAR DEGENERATION
     Route: 031
     Dates: start: 20130104, end: 20130104
  2. CRAVIT (LEVOFLOXACIN)(EYE DROPS) [Concomitant]

REACTIONS (1)
  - Scotoma [None]
